FAERS Safety Report 7249593-X (Version None)
Quarter: 2011Q1

REPORT INFORMATION
  Report Type: 
  Country: None (occurrence: None)
  Receive Date: 20110128
  Receipt Date: 20101215
  Transmission Date: 20110831
  Serious: Yes (Hospitalization, Other)
  Sender: FDA-Public Use
  Company Number: US-BAYER-201020836NA

PATIENT
  Sex: Female
  Weight: 44 kg

DRUGS (6)
  1. YAZ [Suspect]
     Indication: ACNE
  2. YAZ [Suspect]
     Indication: PREMENSTRUAL SYNDROME
  3. YASMIN [Suspect]
     Indication: ACNE
  4. YAZ [Suspect]
     Indication: CONTRACEPTION
     Dosage: UNK UNK, UNK
     Route: 048
     Dates: end: 20070101
  5. YASMIN [Suspect]
     Indication: CONTRACEPTION
     Route: 048
     Dates: start: 20020101
  6. YASMIN [Suspect]
     Indication: PREMENSTRUAL SYNDROME

REACTIONS (8)
  - POST CHOLECYSTECTOMY SYNDROME [None]
  - CHOLECYSTECTOMY [None]
  - ANXIETY [None]
  - DEPRESSION [None]
  - ABDOMINAL DISTENSION [None]
  - DYSPEPSIA [None]
  - CONSTIPATION [None]
  - DIARRHOEA [None]
